FAERS Safety Report 5036246-1 (Version None)
Quarter: 2006Q2

REPORT INFORMATION
  Report Type: 
  Country: None (occurrence: None)
  Receive Date: 20060601
  Receipt Date: 20060427
  Transmission Date: 20061013
  Serious: No
  Sender: FDA-Public Use
  Company Number: US200605000056

PATIENT
  Sex: Female

DRUGS (2)
  1. CYMBALTA [Suspect]
     Dates: end: 20060401
  2. TEGRETOL [Concomitant]

REACTIONS (1)
  - BLEPHAROSPASM [None]
